FAERS Safety Report 9473868 (Version 1)
Quarter: 2013Q3

REPORT INFORMATION
  Report Type: Spontaneous
  Country: US (occurrence: US)
  Receive Date: 20130823
  Receipt Date: 20130823
  Transmission Date: 20140515
  Serious: Yes (Other)
  Sender: FDA-Public Use
  Company Number: US-BRISTOL-MYERS SQUIBB COMPANY-17069865

PATIENT
  Age: 72 Year
  Sex: Female
  Weight: 59.86 kg

DRUGS (1)
  1. SPRYCEL [Suspect]
     Indication: LEUKAEMIA
     Dosage: STARTED IN FEB OR MAR 12. DOSE REDUCED TO 100MG
     Dates: start: 2012

REACTIONS (4)
  - Anaemia [Recovered/Resolved]
  - Headache [Unknown]
  - Nausea [Unknown]
  - Fatigue [Unknown]
